FAERS Safety Report 16877202 (Version 3)
Quarter: 2019Q4

REPORT INFORMATION
  Report Type: Spontaneous
  Country: US (occurrence: US)
  Receive Date: 20191002
  Receipt Date: 20191112
  Transmission Date: 20200122
  Serious: Yes (Death, Hospitalization, Other)
  Sender: FDA-Public Use
  Company Number: US-PFIZER INC-2018065698

PATIENT
  Age: 68 Year
  Sex: Female
  Weight: 63 kg

DRUGS (17)
  1. LYRICA [Suspect]
     Active Substance: PREGABALIN
     Indication: NEUROPATHY PERIPHERAL
     Dosage: 75 MG, 2X/DAY
     Route: 048
     Dates: end: 20190712
  2. LYRICA [Suspect]
     Active Substance: PREGABALIN
     Dosage: UNK, ^DOSE TAPER^ (1 CAP AT BEDTIME FOR A WK, THEN 1 CAP 2X/DAY FOR A WK, THEN 1 CAP 3X/DAY FOR A WK
     Dates: start: 20190807
  3. LYRICA [Suspect]
     Active Substance: PREGABALIN
     Dosage: 75 MG, 3X/DAY
     Route: 048
     Dates: start: 20170427, end: 20190818
  4. PANTOPRAZOLE [Concomitant]
     Active Substance: PANTOPRAZOLE
     Indication: GASTROOESOPHAGEAL REFLUX DISEASE
     Dosage: 20 MG, 1X/DAY
     Dates: start: 20190712
  5. TRAZODONE [Concomitant]
     Active Substance: TRAZODONE HYDROCHLORIDE
     Indication: SLEEP DISORDER
     Dosage: UNK
     Dates: start: 201907
  6. AMITRIPTYLINE [Concomitant]
     Active Substance: AMITRIPTYLINE
     Indication: PAIN
     Dosage: 50 MG, 1X/DAY (AT BEDTIME ONCE DAILY)
     Dates: start: 20190807
  7. HYDROCODONE [Concomitant]
     Active Substance: HYDROCODONE
     Indication: INTERVERTEBRAL DISC DISORDER
     Dosage: 10/325 MG ONCE EVERY
     Dates: start: 20181009, end: 20190819
  8. HYDROCODONE [Concomitant]
     Active Substance: HYDROCODONE
     Indication: PAIN
  9. POTASSIUM CHLORIDE. [Concomitant]
     Active Substance: POTASSIUM CHLORIDE
     Indication: HYPOKALAEMIA
     Dosage: 20 MEQ, 2X/DAY(20MEQ EXTENDED-RELEASE TAKEN TWICE DAILY WITH MEALS)
     Dates: start: 20190712
  10. DULOXETINE. [Concomitant]
     Active Substance: DULOXETINE
     Indication: DEPRESSION
     Dosage: 30 MG, DAILY
     Dates: start: 20130129, end: 20190819
  11. CYMBALTA [Concomitant]
     Active Substance: DULOXETINE HYDROCHLORIDE
     Indication: ANXIETY
     Dosage: 60 MG, 1X/DAY (60MG TAKEN ONCE DAILY)
     Dates: start: 20190712
  12. CYMBALTA [Concomitant]
     Active Substance: DULOXETINE HYDROCHLORIDE
     Indication: DEPRESSION
     Dosage: 30 MG, 1X/DAY (ONCE DAILY)
     Dates: start: 20190816
  13. ALPRAZOLAM. [Concomitant]
     Active Substance: ALPRAZOLAM
     Indication: ANXIETY
     Dosage: 0.5 MG, 4X/DAY [0.5MG TABLET-PRESCRIBED AS 1 TABLET BY MOUTH 4 TIMES DAILY]
     Route: 048
     Dates: start: 20160712, end: 20190819
  14. AMITRIPTYLINE [Concomitant]
     Active Substance: AMITRIPTYLINE
     Indication: DEPRESSION
     Dosage: 10 MG, UNK (10MG TABLET UP TO 3 TIMES DAILY)
  15. IRON [Concomitant]
     Active Substance: IRON
     Indication: IRON DEFICIENCY ANAEMIA
     Dosage: 325 MG, 1X/DAY
     Dates: start: 20190110
  16. PROZAC [Concomitant]
     Active Substance: FLUOXETINE HYDROCHLORIDE
     Indication: MAJOR DEPRESSION
     Dosage: 10 MG, 1X/DAY
     Dates: start: 20190807
  17. RETIN-A [Concomitant]
     Active Substance: TRETINOIN
     Dosage: UNK, 1X/DAY [CREAM USED AT BEDTIME]
     Dates: start: 20131023

REACTIONS (2)
  - Completed suicide [Fatal]
  - Suicide attempt [Unknown]

NARRATIVE: CASE EVENT DATE: 20190630
